FAERS Safety Report 6803554-0 (Version None)
Quarter: 2010Q2

REPORT INFORMATION
  Report Type: 
  Country: None (occurrence: None)
  Receive Date: 20100628
  Receipt Date: 20100621
  Transmission Date: 20101027
  Serious: Yes (Other)
  Sender: FDA-Public Use
  Company Number: JP-MERCK-1001USA02848

PATIENT
  Age: 51 Year
  Sex: Male

DRUGS (16)
  1. EMEND [Suspect]
     Indication: PROPHYLAXIS OF NAUSEA AND VOMITING
     Route: 048
     Dates: start: 20100114, end: 20100115
  2. EMEND [Suspect]
     Route: 048
     Dates: start: 20100113, end: 20100113
  3. DEPAKENE [Concomitant]
     Route: 065
     Dates: start: 20100115
  4. DEPAKENE [Concomitant]
     Route: 065
     Dates: end: 20100107
  5. BRIPLATIN [Concomitant]
     Indication: LUNG NEOPLASM MALIGNANT
     Route: 065
     Dates: start: 20100113, end: 20100113
  6. BRIPLATIN [Concomitant]
     Indication: BRAIN CANCER METASTATIC
     Route: 065
     Dates: start: 20100113, end: 20100113
  7. NAVELBINE [Concomitant]
     Indication: LUNG NEOPLASM MALIGNANT
     Route: 065
     Dates: start: 20100113, end: 20100113
  8. NAVELBINE [Concomitant]
     Indication: BRAIN CANCER METASTATIC
     Route: 065
     Dates: start: 20100113, end: 20100113
  9. GRANISETRON HYDROCHLORIDE [Concomitant]
     Route: 065
     Dates: start: 20100113, end: 20100113
  10. DECADRON [Concomitant]
     Route: 065
     Dates: start: 20100113, end: 20100113
  11. DECADRON [Concomitant]
     Route: 048
     Dates: start: 20100113, end: 20100116
  12. DECADRON [Concomitant]
     Route: 048
     Dates: start: 20100119
  13. RAMELTEON [Concomitant]
     Route: 065
     Dates: start: 20100113, end: 20100113
  14. PRIMPERAN TAB [Concomitant]
     Route: 065
     Dates: start: 20100115, end: 20100119
  15. GASTER [Concomitant]
     Route: 048
     Dates: start: 20100119
  16. LASIX [Concomitant]
     Route: 065
     Dates: start: 20100115, end: 20100115

REACTIONS (1)
  - CONVULSION [None]
